FAERS Safety Report 13250203 (Version 1)
Quarter: 2017Q1

REPORT INFORMATION
  Report Type: Spontaneous
  Country: IN (occurrence: IN)
  Receive Date: 20170218
  Receipt Date: 20170218
  Transmission Date: 20170428
  Serious: Yes (Hospitalization)
  Sender: FDA-Public Use
  Company Number: IN-BION-005985

PATIENT
  Age: 60 Year
  Sex: Female

DRUGS (2)
  1. OLANZAPINE. [Concomitant]
     Active Substance: OLANZAPINE
     Indication: PSYCHOTIC DISORDER
     Dosage: FOR THE PAST 2 YEARS
  2. VALPROIC ACID (UNKNOWN MAH) [Suspect]
     Active Substance: VALPROIC ACID
     Indication: AGITATION

REACTIONS (1)
  - Neuroleptic malignant syndrome [Recovered/Resolved]
